FAERS Safety Report 8596021-8 (Version None)
Quarter: 2012Q3

REPORT INFORMATION
  Report Type: 
  Country: None (occurrence: None)
  Receive Date: 20120807
  Receipt Date: 20120807
  Transmission Date: 20120928
  Serious: No
  Sender: FDA-Public Use
  Company Number: None

PATIENT
  Age: 18 Year
  Sex: Male

DRUGS (4)
  1. STRATTERA [Concomitant]
  2. RITALIN [Suspect]
     Indication: ATTENTION DEFICIT/HYPERACTIVITY DISORDER
     Dosage: 5MG 7A 9A 12PM + 3PM
  3. CONCERTA [Concomitant]
  4. SEROQUEL [Concomitant]

REACTIONS (7)
  - OPPOSITIONAL DEFIANT DISORDER [None]
  - DISTURBANCE IN ATTENTION [None]
  - RASH [None]
  - AGGRESSION [None]
  - ANGER [None]
  - AGITATION [None]
  - PRODUCT SUBSTITUTION ISSUE [None]
